FAERS Safety Report 25472469 (Version 3)
Quarter: 2025Q3

REPORT INFORMATION
  Report Type: Spontaneous
  Country: EU (occurrence: EU)
  Receive Date: 20250624
  Receipt Date: 20250923
  Transmission Date: 20251021
  Serious: Yes (Other)
  Sender: NOVARTIS
  Company Number: EU-002147023-NVSC2025ES084375

PATIENT
  Age: 64 Year
  Sex: Male

DRUGS (16)
  1. EVEROLIMUS [Suspect]
     Active Substance: EVEROLIMUS
     Indication: Pleural effusion
     Route: 065
  2. EVEROLIMUS [Suspect]
     Active Substance: EVEROLIMUS
     Indication: Antiviral prophylaxis
     Route: 065
     Dates: start: 202404
  3. MYCOPHENOLATE MOFETIL [Suspect]
     Active Substance: MYCOPHENOLATE MOFETIL
     Indication: Heart transplant
     Route: 065
  4. TACROLIMUS [Suspect]
     Active Substance: TACROLIMUS
     Indication: Heart transplant
     Route: 065
  5. TACROLIMUS [Suspect]
     Active Substance: TACROLIMUS
     Route: 065
  6. BASILIXIMAB [Suspect]
     Active Substance: BASILIXIMAB
     Indication: Heart transplant
     Route: 065
  7. VALGANCICLOVIR [Suspect]
     Active Substance: VALGANCICLOVIR
     Indication: Antiviral prophylaxis
     Route: 065
     Dates: start: 202304
  8. VALGANCICLOVIR [Suspect]
     Active Substance: VALGANCICLOVIR
     Route: 065
     Dates: start: 202404
  9. FOSCARNET [Suspect]
     Active Substance: FOSCARNET
     Indication: Antiviral prophylaxis
     Route: 065
     Dates: start: 202307
  10. FOSCARNET [Suspect]
     Active Substance: FOSCARNET
     Indication: Renal impairment
     Route: 065
     Dates: start: 202404
  11. MARIBAVIR [Suspect]
     Active Substance: MARIBAVIR
     Indication: Antiviral prophylaxis
     Route: 065
     Dates: start: 202307
  12. MARIBAVIR [Suspect]
     Active Substance: MARIBAVIR
     Route: 065
     Dates: start: 202308
  13. MARIBAVIR [Suspect]
     Active Substance: MARIBAVIR
     Route: 065
     Dates: start: 202403
  14. GANCICLOVIR [Suspect]
     Active Substance: GANCICLOVIR
     Indication: Antiviral prophylaxis
     Route: 065
     Dates: start: 202307
  15. GANCICLOVIR [Suspect]
     Active Substance: GANCICLOVIR
     Route: 065
     Dates: start: 202308
  16. ECULIZUMAB [Concomitant]
     Active Substance: ECULIZUMAB
     Indication: Thrombotic microangiopathy
     Route: 065

REACTIONS (8)
  - Pneumonia [Unknown]
  - Thrombotic microangiopathy [Recovering/Resolving]
  - Condition aggravated [Recovering/Resolving]
  - Pancytopenia [Unknown]
  - Drug resistance [Unknown]
  - Pleural effusion [Unknown]
  - Cytomegalovirus infection [Not Recovered/Not Resolved]
  - Therapeutic product effect incomplete [Unknown]

NARRATIVE: CASE EVENT DATE: 20230701
